FAERS Safety Report 9406480 (Version 1)
Quarter: 2013Q3

REPORT INFORMATION
  Report Type: Report from Study
  Country: BE (occurrence: BE)
  Receive Date: 20130718
  Receipt Date: 20130718
  Transmission Date: 20140515
  Serious: Yes (Death)
  Sender: FDA-Public Use
  Company Number: BE-ROCHE-1239454

PATIENT
  Age: 23 Year
  Sex: Female
  Weight: 57 kg

DRUGS (6)
  1. AVASTIN [Suspect]
     Indication: OVARIAN CANCER
     Route: 042
     Dates: start: 20130425, end: 20130513
  2. CARBOPLATIN [Concomitant]
     Indication: OVARIAN CANCER
  3. TAXOL [Concomitant]
     Indication: OVARIAN CANCER
     Route: 065
  4. SOLU-MEDROL [Concomitant]
     Indication: SUBILEUS
     Route: 042
     Dates: start: 20130513
  5. PANTOMED (BELGIUM) [Concomitant]
     Indication: OESOPHAGITIS
     Route: 042
     Dates: start: 20130511
  6. LITICAN [Concomitant]
     Indication: SUBILEUS
     Route: 042
     Dates: start: 20130510

REACTIONS (4)
  - Pulmonary embolism [Fatal]
  - Subileus [Fatal]
  - Renal failure [Fatal]
  - Disease progression [Fatal]
